FAERS Safety Report 6734607 (Version 1)
Quarter: 2020Q3

REPORT INFORMATION
  Report Type: Spontaneous
  Country: US (occurrence: US)
  Receive Date: 20080822
  Receipt Date: 20080822
  Transmission Date: 20201104
  Serious: Yes (Hospitalization, Other)
  Sender: FDA-Public Use
  Company Number: US-PFIZER INC-2008068968

PATIENT
  Sex: Female
  Weight: 71.2 kg

DRUGS (14)
  1. HYDROCHLOROTHIAZIDE. [Concomitant]
     Active Substance: HYDROCHLOROTHIAZIDE
  2. LISINOPRIL. [Concomitant]
     Active Substance: LISINOPRIL
  3. PNEUMOCOCCAL VACCINE [Concomitant]
  4. IBANDRONIC ACID. [Suspect]
     Active Substance: IBANDRONIC ACID
     Indication: OSTEOPOROSIS
     Route: 048
     Dates: start: 20080118, end: 20080418
  5. FLECAINIDE [Concomitant]
     Active Substance: FLECAINIDE
  6. WARFARIN SODIUM. [Concomitant]
     Active Substance: WARFARIN SODIUM
     Dates: start: 20080714, end: 20080714
  7. SPIRONOLACTONE. [Concomitant]
     Active Substance: SPIRONOLACTONE
  8. MULTIVITAMINS [Concomitant]
     Active Substance: VITAMINS
  9. ATENOLOL. [Concomitant]
     Active Substance: ATENOLOL
  10. INFLUENZA VIRUS VACCINE NOS [Concomitant]
     Active Substance: INFLUENZA VIRUS VACCINE
  11. UNSPECIFIED INGREDIENT [Concomitant]
     Active Substance: UNSPECIFIED INGREDIENT
  12. NORVASC [Suspect]
     Active Substance: AMLODIPINE BESYLATE
  13. AVAPRO [Concomitant]
     Active Substance: IRBESARTAN
  14. SIMVASTATIN. [Concomitant]
     Active Substance: SIMVASTATIN

REACTIONS (8)
  - Condition aggravated [Unknown]
  - Osteoarthritis [Unknown]
  - Joint swelling [Unknown]
  - Headache [Unknown]
  - Vision blurred [Recovered/Resolved]
  - Small intestinal obstruction [Recovered/Resolved]
  - Viral upper respiratory tract infection [Unknown]
  - Blood sodium decreased [Unknown]
